FAERS Safety Report 23263067 (Version 1)
Quarter: 2023Q4

REPORT INFORMATION
  Report Type: Report from Study
  Country: FR (occurrence: FR)
  Receive Date: 20231205
  Receipt Date: 20231205
  Transmission Date: 20240110
  Serious: Yes (Life-Threatening, Hospitalization, Other)
  Sender: FDA-Public Use
  Company Number: None

PATIENT
  Age: 49 Year
  Sex: Female
  Weight: 67 kg

DRUGS (30)
  1. LEVOTHYROXINE [Suspect]
     Active Substance: LEVOTHYROXINE
     Indication: Product used for unknown indication
     Dates: start: 20160127
  2. LEVOTHYROXINE [Suspect]
     Active Substance: LEVOTHYROXINE
  3. TRAMADOL HYDROCHLORIDE [Suspect]
     Active Substance: TRAMADOL HYDROCHLORIDE
     Indication: Product used for unknown indication
     Dosage: 100 MG, 2/DAY
     Route: 048
  4. TRAMADOL HYDROCHLORIDE [Suspect]
     Active Substance: TRAMADOL HYDROCHLORIDE
     Dates: start: 20160109, end: 20160109
  5. CYAMEMAZINE [Suspect]
     Active Substance: CYAMEMAZINE
     Indication: Product used for unknown indication
     Dosage: 150 TABLETS
     Route: 048
     Dates: start: 20160109, end: 20160109
  6. CYAMEMAZINE [Suspect]
     Active Substance: CYAMEMAZINE
  7. MOBIC [Suspect]
     Active Substance: MELOXICAM
     Indication: Product used for unknown indication
     Dosage: 28 TABLETS
     Dates: start: 20160109, end: 20160109
  8. MOBIC [Suspect]
     Active Substance: MELOXICAM
  9. STELARA [Suspect]
     Active Substance: USTEKINUMAB
     Indication: Psoriasis
     Route: 058
     Dates: start: 201506, end: 20160109
  10. STELARA [Suspect]
     Active Substance: USTEKINUMAB
     Dates: start: 20150226, end: 201506
  11. POTASSIUM CHLORIDE [Suspect]
     Active Substance: POTASSIUM CHLORIDE
     Indication: Product used for unknown indication
     Dates: start: 20160109, end: 20160109
  12. POTASSIUM CHLORIDE [Suspect]
     Active Substance: POTASSIUM CHLORIDE
  13. ARCOXIA [Suspect]
     Active Substance: ETORICOXIB
     Indication: Product used for unknown indication
     Dates: start: 20160109, end: 20160109
  14. ARCOXIA [Suspect]
     Active Substance: ETORICOXIB
  15. LYRICA [Suspect]
     Active Substance: PREGABALIN
     Indication: Product used for unknown indication
     Dosage: 56 TABLETS
     Route: 048
     Dates: start: 20160109, end: 20160109
  16. LYRICA [Suspect]
     Active Substance: PREGABALIN
  17. THIOCOLCHICOSIDE [Suspect]
     Active Substance: THIOCOLCHICOSIDE
     Indication: Product used for unknown indication
     Dosage: 40 MG, 3/DAY
     Route: 048
  18. THIOCOLCHICOSIDE [Suspect]
     Active Substance: THIOCOLCHICOSIDE
     Route: 048
  19. SACOLENE [Concomitant]
     Indication: Product used for unknown indication
     Dosage: DOSAGE FORM: UNSPECIFIED, AS REQUIRED
  20. RACECADOTRIL [Concomitant]
     Active Substance: RACECADOTRIL
     Indication: Product used for unknown indication
     Dosage: DOSAGE FORM: UNSPECIFIED, AS REQUIRED
  21. ARAVA [Concomitant]
     Active Substance: LEFLUNOMIDE
     Indication: Product used for unknown indication
  22. ZOCOR [Concomitant]
     Active Substance: SIMVASTATIN
     Indication: Product used for unknown indication
     Dosage: 20 MG, 1/DAY
     Route: 048
  23. ESOMEPRAZOLE [Concomitant]
     Active Substance: ESOMEPRAZOLE
     Indication: Product used for unknown indication
     Route: 048
  24. ACETAMINOPHEN [Concomitant]
     Active Substance: ACETAMINOPHEN
     Indication: Pain
     Dosage: 1 G, IF VISUAL ANALOG SCALE (VAS) HIGHER THAN AT 4.1
  25. MONTMORILLONITE [Concomitant]
     Active Substance: MONTMORILLONITE
     Indication: Product used for unknown indication
     Dosage: DOSAGE FORM: UNSPECIFIED
  26. POLYETHYLENE GLYCOL 4000 [Concomitant]
     Active Substance: POLYETHYLENE GLYCOL 4000
     Indication: Product used for unknown indication
     Dosage: 10 G, AS NEEDED, POWDER FOR ORAL SOLUTION
     Route: 048
  27. ACETAMINOPHEN [Concomitant]
     Active Substance: ACETAMINOPHEN
     Indication: Product used for unknown indication
     Dosage: DOSAGE FORM: UNSPECIFIED
  28. ESOMEPRAZOLE MAGNESIUM [Concomitant]
     Active Substance: ESOMEPRAZOLE\ESOMEPRAZOLE MAGNESIUM\ESOMEPRAZOLE MAGNESIUM DIHYDRATE
     Indication: Product used for unknown indication
     Dosage: DOSAGE FORM: UNSPECIFIED
  29. URAPIDIL [Concomitant]
     Active Substance: URAPIDIL
     Indication: Product used for unknown indication
     Dosage: 30 MG, 3 TIMES DAILY IF REQUIRED, IF BLOOD PRESSURE HIGHER THAN 120/70 MMHG
  30. ENOXAPARIN SODIUM [Concomitant]
     Active Substance: ENOXAPARIN SODIUM
     Indication: Product used for unknown indication
     Dosage: 0.4 ML, ONCE

REACTIONS (18)
  - Suicide attempt [Recovered/Resolved]
  - Coma [Recovered/Resolved]
  - Cardio-respiratory arrest [Recovered/Resolved]
  - Pneumonia [Recovered/Resolved]
  - Lung disorder [Recovered/Resolved]
  - Acute respiratory distress syndrome [Recovered/Resolved]
  - Lung disorder [Recovered/Resolved]
  - Respiratory acidosis [Recovered/Resolved]
  - Pneumonia staphylococcal [Recovered/Resolved]
  - Pneumonia haemophilus [Recovered/Resolved]
  - Toxic encephalopathy [Unknown]
  - Hepatic cytolysis [Recovered/Resolved]
  - Anaemia [Unknown]
  - Thrombocytosis [Not Recovered/Not Resolved]
  - Dysphonia [Unknown]
  - Amnesia [Unknown]
  - Toxicity to various agents [Recovered/Resolved]
  - Intentional overdose [Recovered/Resolved]

NARRATIVE: CASE EVENT DATE: 20160101
